FAERS Safety Report 7074816-X (Version None)
Quarter: 2010Q4

REPORT INFORMATION
  Report Type: 
  Country: None (occurrence: None)
  Receive Date: 20101029
  Receipt Date: 20101015
  Transmission Date: 20110411
  Serious: Yes (Life-Threatening)
  Sender: FDA-Public Use
  Company Number: NO-GENENTECH-308413

PATIENT
  Sex: Male

DRUGS (6)
  1. MABTHERA [Suspect]
     Indication: RHEUMATOID ARTHRITIS
     Dosage: 1000 MG, UNK
     Route: 042
     Dates: start: 20100618, end: 20100705
  2. NAPROSYN [Concomitant]
     Dosage: 250 MG, UNK
  3. METOPROLOL SUCCINATE [Concomitant]
     Dosage: 50 MG, QAM
  4. LEVOTHYROXINE SODIUM [Concomitant]
     Dosage: 125 A?G, QAM
  5. PREDNISOLON [Concomitant]
     Dosage: UNK
  6. NEXIUM [Concomitant]
     Dosage: 20 MG, BID

REACTIONS (8)
  - BACK PAIN [None]
  - BLOOD CULTURE POSITIVE [None]
  - CANDIDIASIS [None]
  - MULTI-ORGAN FAILURE [None]
  - PSEUDOMONAS INFECTION [None]
  - SEPSIS [None]
  - STAPHYLOCOCCAL INFECTION [None]
  - URINARY TRACT INFECTION [None]
